FAERS Safety Report 16655692 (Version 3)
Quarter: 2019Q3

REPORT INFORMATION
  Report Type: Report from Study
  Country: DE (occurrence: DE)
  Receive Date: 20190801
  Receipt Date: 20190828
  Transmission Date: 20191004
  Serious: Yes (Hospitalization, Other)
  Sender: FDA-Public Use
  Company Number: PHHY2019DE175890

PATIENT
  Age: 74 Year
  Sex: Male
  Weight: 68 kg

DRUGS (1)
  1. OMNITROPE [Suspect]
     Active Substance: SOMATROPIN
     Indication: GROWTH HORMONE DEFICIENCY
     Dosage: 0.6 MG, QD (5MG/ML SOLUTION FOR INJECTION)
     Route: 058
     Dates: start: 20180718

REACTIONS (11)
  - Vomiting [Recovered/Resolved]
  - Chills [Recovered/Resolved]
  - Depressed level of consciousness [Recovered/Resolved]
  - Glomerular filtration rate decreased [Unknown]
  - Adrenocortical insufficiency acute [Recovered/Resolved]
  - Dementia [Unknown]
  - Acute kidney injury [Recovered/Resolved]
  - Gastritis [Recovered/Resolved]
  - Dehydration [Recovered/Resolved]
  - Blood creatinine increased [Unknown]
  - Diarrhoea [Recovered/Resolved]

NARRATIVE: CASE EVENT DATE: 20180830
